FAERS Safety Report 19521733 (Version 1)
Quarter: 2021Q3

REPORT INFORMATION
  Report Type: Spontaneous
  Country: US (occurrence: US)
  Receive Date: 20210712
  Receipt Date: 20210712
  Transmission Date: 20211014
  Serious: Yes (Death, Other)
  Sender: FDA-Public Use
  Company Number: US-PFIZER INC-2021282144

PATIENT
  Age: 73 Year
  Sex: Male
  Weight: 77.1 kg

DRUGS (2)
  1. IPILIMUMAB [Concomitant]
     Active Substance: IPILIMUMAB
     Dosage: UNK
     Dates: start: 20200917
  2. INLYTA [Suspect]
     Active Substance: AXITINIB
     Indication: RENAL CANCER
     Dosage: 5 MG, 2X/DAY (AM+PM)
     Dates: start: 20201201

REACTIONS (5)
  - Peripheral swelling [Unknown]
  - Heart rate increased [Unknown]
  - Pulmonary embolism [Fatal]
  - Pain in extremity [Unknown]
  - Thrombosis [Unknown]

NARRATIVE: CASE EVENT DATE: 20210306
